FAERS Safety Report 18188854 (Version 3)
Quarter: 2021Q1

REPORT INFORMATION
  Report Type: Report from Study
  Country: JP (occurrence: JP)
  Receive Date: 20200825
  Receipt Date: 20210202
  Transmission Date: 20210419
  Serious: Yes (Hospitalization)
  Sender: FDA-Public Use
  Company Number: JP-ROCHE-2663258

PATIENT
  Age: 52 Year
  Sex: Female
  Weight: 47.2 kg

DRUGS (6)
  1. ENTRECTINIB [Suspect]
     Active Substance: ENTRECTINIB
     Indication: NEOPLASM
     Dosage: THE MOST RECENT DOSE PRIOR TO AE/SAE? 14/AUG/2020
     Route: 048
     Dates: start: 20171024
  2. PREDNISOLONE. [Suspect]
     Active Substance: PREDNISOLONE
     Indication: PRODUCT USED FOR UNKNOWN INDICATION
     Route: 065
     Dates: start: 201705, end: 20200602
  3. FAMOTIDINE. [Concomitant]
     Active Substance: FAMOTIDINE
     Dates: start: 20171107
  4. GOREISAN [Concomitant]
     Active Substance: HERBALS
     Dates: start: 20171219
  5. SPIRONOLACTONE. [Concomitant]
     Active Substance: SPIRONOLACTONE
     Dates: start: 20180130
  6. FUROSEMIDE. [Concomitant]
     Active Substance: FUROSEMIDE
     Dates: start: 20180130

REACTIONS (1)
  - Spinal stenosis [Recovered/Resolved]

NARRATIVE: CASE EVENT DATE: 20190902
